FAERS Safety Report 11363608 (Version 2)
Quarter: 2015Q4

REPORT INFORMATION
  Report Type: Report from Study
  Country: CO (occurrence: CO)
  Receive Date: 20150811
  Receipt Date: 20151022
  Transmission Date: 20160304
  Serious: Yes (Other)
  Sender: FDA-Public Use
  Company Number: PHHY2015CO089980

PATIENT
  Sex: Female

DRUGS (2)
  1. SIGNIFOR [Suspect]
     Active Substance: PASIREOTIDE
     Dosage: 1 DF, BID
     Route: 058
     Dates: start: 20150729
  2. SIGNIFOR [Suspect]
     Active Substance: PASIREOTIDE
     Indication: PITUITARY-DEPENDENT CUSHING^S SYNDROME
     Dosage: 1 DF, BID
     Route: 058
     Dates: start: 20150702, end: 20150721

REACTIONS (1)
  - Pituitary tumour benign [Unknown]
